FAERS Safety Report 5426020-6 (Version None)
Quarter: 2007Q3

REPORT INFORMATION
  Report Type: 
  Country: None (occurrence: None)
  Receive Date: 20070824
  Receipt Date: 20070824
  Transmission Date: 20080115
  Serious: Yes (Other)
  Sender: FDA-Public Use
  Company Number: None

PATIENT
  Age: 83 Year
  Sex: Female
  Weight: 56.246 kg

DRUGS (1)
  1. AMILODIPINE BESYLATE 10MG [Suspect]
     Dosage: 10MG 1 QD P.O.
     Route: 048
     Dates: start: 20070526

REACTIONS (3)
  - NAUSEA [None]
  - PALPITATIONS [None]
  - PHARMACEUTICAL PRODUCT COMPLAINT [None]
